FAERS Safety Report 6070084-6 (Version None)
Quarter: 2009Q1

REPORT INFORMATION
  Report Type: 
  Country: None (occurrence: None)
  Receive Date: 20090203
  Receipt Date: 20090130
  Transmission Date: 20090719
  Serious: Yes (Hospitalization)
  Sender: FDA-Public Use
  Company Number: 2009S1001003

PATIENT
  Age: 67 Year
  Sex: Female

DRUGS (2)
  1. CITALOPRAM HYDROBROMIDE [Suspect]
     Indication: DEPRESSION
     Dosage: 20 MG; DAILY;
  2. ZIPRASIDONE HCL [Suspect]
     Indication: DEPRESSION
     Dosage: 40 MG; TWICE A DAY;

REACTIONS (7)
  - ANHEDONIA [None]
  - ANXIETY [None]
  - DEPRESSION [None]
  - DYSPHORIA [None]
  - HALLUCINATIONS, MIXED [None]
  - PSYCHOTIC DISORDER [None]
  - TARDIVE DYSKINESIA [None]
